FAERS Safety Report 12697838 (Version 5)
Quarter: 2017Q3

REPORT INFORMATION
  Report Type: Report from Study
  Country: DE (occurrence: DE)
  Receive Date: 20160830
  Receipt Date: 20170823
  Transmission Date: 20171127
  Serious: Yes (Life-Threatening, Hospitalization)
  Sender: FDA-Public Use
  Company Number: DE-ROCHE-1801827

PATIENT
  Age: 77 Year
  Sex: Female

DRUGS (28)
  1. BEVACIZUMAB. [Suspect]
     Active Substance: BEVACIZUMAB
     Route: 042
     Dates: start: 20140129
  2. BEVACIZUMAB. [Suspect]
     Active Substance: BEVACIZUMAB
     Route: 042
     Dates: start: 20131016
  3. CARBOPLATIN. [Suspect]
     Active Substance: CARBOPLATIN
     Route: 042
     Dates: start: 20131016, end: 20131016
  4. PACLITAXEL. [Suspect]
     Active Substance: PACLITAXEL
     Dosage: SAME DOSE ON 27/NOV/2013
     Route: 042
     Dates: start: 20131106, end: 20131106
  5. RAMIPRIL. [Concomitant]
     Active Substance: RAMIPRIL
     Indication: HYPERTENSION
     Route: 048
     Dates: start: 20140926
  6. ANAFRANIL [Concomitant]
     Active Substance: CLOMIPRAMINE HYDROCHLORIDE
     Indication: DEPRESSION
     Route: 048
  7. BEVACIZUMAB. [Suspect]
     Active Substance: BEVACIZUMAB
     Route: 042
     Dates: start: 20131218
  8. PACLITAXEL. [Suspect]
     Active Substance: PACLITAXEL
     Indication: OVARIAN CANCER
     Dosage: 304-308 MG. SAME DOSE ON 04/SEP/2013
     Route: 042
     Dates: start: 20130814, end: 20131127
  9. BAYOTENSIN [Concomitant]
     Route: 042
     Dates: start: 20140625
  10. SPASMEX (GERMANY) [Concomitant]
     Indication: INCONTINENCE
     Route: 048
     Dates: start: 201307
  11. FELODIPIN [Concomitant]
     Active Substance: FELODIPINE
     Indication: HYPERTENSION
     Route: 048
     Dates: end: 20140925
  12. CARBOPLATIN. [Suspect]
     Active Substance: CARBOPLATIN
     Indication: OVARIAN CANCER
     Dosage: 390-465 MG
     Route: 042
     Dates: start: 20130814, end: 20131127
  13. CARBOPLATIN. [Suspect]
     Active Substance: CARBOPLATIN
     Dosage: SAME DOSE ON 06/NOV/2013
     Route: 042
     Dates: start: 20130925, end: 20130925
  14. VALSARTAN. [Concomitant]
     Active Substance: VALSARTAN
     Indication: HYPERTENSION
     Route: 048
     Dates: start: 20140926
  15. MCP [Concomitant]
     Active Substance: METOCLOPRAMIDE HYDROCHLORIDE
     Route: 048
  16. CARBOPLATIN. [Suspect]
     Active Substance: CARBOPLATIN
     Route: 042
     Dates: start: 20131106, end: 20131106
  17. FELODIPIN [Concomitant]
     Active Substance: FELODIPINE
     Route: 048
     Dates: start: 20140926
  18. BEVACIZUMAB. [Suspect]
     Active Substance: BEVACIZUMAB
     Indication: OVARIAN CANCER
     Route: 042
     Dates: start: 20130904, end: 20130904
  19. BAYOTENSIN [Concomitant]
     Indication: HYPERTENSION
     Dosage: AMPOULE
     Route: 065
     Dates: start: 20140423, end: 20140423
  20. BEVACIZUMAB. [Suspect]
     Active Substance: BEVACIZUMAB
     Route: 042
     Dates: start: 20131106
  21. BEVACIZUMAB. [Suspect]
     Active Substance: BEVACIZUMAB
     Route: 042
     Dates: start: 20140918, end: 20140918
  22. CARBOPLATIN. [Suspect]
     Active Substance: CARBOPLATIN
     Dosage: SAME DOSE ON 16/NOV/2013
     Route: 042
     Dates: start: 20130904, end: 20130904
  23. DIAZEPAM. [Concomitant]
     Active Substance: DIAZEPAM
     Indication: DEPRESSION
     Route: 048
  24. CLONIDIN (GERMANY) [Concomitant]
     Indication: HYPERTENSION
     Dosage: ONCE
     Route: 058
     Dates: start: 20130925, end: 20130925
  25. BEVACIZUMAB. [Suspect]
     Active Substance: BEVACIZUMAB
     Route: 042
     Dates: start: 20140827, end: 20140827
  26. CARBOPLATIN. [Suspect]
     Active Substance: CARBOPLATIN
     Route: 042
     Dates: start: 20131127, end: 20131127
  27. PACLITAXEL. [Suspect]
     Active Substance: PACLITAXEL
     Dosage: SAME DOSE ON 16/OCT/2013
     Route: 042
     Dates: start: 20130925, end: 20130925
  28. FERRO SANOL [Concomitant]
     Active Substance: FERROUS GLYCINE SULFATE

REACTIONS (16)
  - Pneumonia aspiration [Recovered/Resolved]
  - Anaemia [Recovered/Resolved]
  - Paraesthesia [Not Recovered/Not Resolved]
  - Hemiparesis [Recovering/Resolving]
  - Aspiration [Recovered/Resolved]
  - Dizziness [Not Recovered/Not Resolved]
  - Dysgeusia [Recovered/Resolved]
  - Bone pain [Recovered/Resolved]
  - Aphasia [Recovering/Resolving]
  - Pain in extremity [Recovered/Resolved]
  - Asphyxia [Recovered/Resolved]
  - Hypoxia [Recovered/Resolved]
  - Memory impairment [Recovering/Resolving]
  - Hypercholesterolaemia [Not Recovered/Not Resolved]
  - Cerebral infarction [Recovered/Resolved with Sequelae]
  - Nausea [Recovered/Resolved]

NARRATIVE: CASE EVENT DATE: 201311
